FAERS Safety Report 8915496 (Version 2)
Quarter: 2012Q4

REPORT INFORMATION
  Report Type: 
  Country: US (occurrence: US)
  Receive Date: 20121119
  Receipt Date: 20121227
  Transmission Date: 20130627
  Serious: Yes (Death)
  Sender: FDA-Public Use
  Company Number: US-PFIZER INC-2012285477

PATIENT
  Age: 64 Year
  Sex: Female

DRUGS (8)
  1. XALKORI [Suspect]
     Indication: LUNG CANCER
     Dosage: 250 mg, 2x/day
     Route: 048
     Dates: start: 20120613
  2. XANAX [Concomitant]
     Dosage: 1 mg, UNK
  3. PROMETHAZINE HYDROCHLORIDE [Concomitant]
     Dosage: 12.5 mg, UNK
  4. PRILOSEC [Concomitant]
     Dosage: 20 mg, UNK
  5. ENOXAPARIN [Concomitant]
     Dosage: 300/3 ml, UNK
  6. ALEVE [Concomitant]
     Dosage: UNK
  7. COLACE [Concomitant]
     Dosage: 2.1 g, UNK
  8. ALEVE COLD + SINUS [Concomitant]
     Dosage: UNK

REACTIONS (1)
  - Death [Fatal]
